FAERS Safety Report 24608108 (Version 2)
Quarter: 2025Q1

REPORT INFORMATION
  Report Type: Spontaneous
  Country: AT (occurrence: AT)
  Receive Date: 20241112
  Receipt Date: 20250116
  Transmission Date: 20250408
  Serious: Yes (Hospitalization, Other)
  Sender: ALEXION PHARMACEUTICALS
  Company Number: AT-AstraZeneca-CH-00741001A

PATIENT
  Age: 49 Year
  Weight: 124 kg

DRUGS (21)
  1. SAPHNELO [Suspect]
     Active Substance: ANIFROLUMAB-FNIA
     Indication: Systemic lupus erythematosus
  2. SAPHNELO [Suspect]
     Active Substance: ANIFROLUMAB-FNIA
     Route: 041
  3. SAPHNELO [Suspect]
     Active Substance: ANIFROLUMAB-FNIA
  4. SAPHNELO [Suspect]
     Active Substance: ANIFROLUMAB-FNIA
     Route: 041
  5. HYDROXYCHLOROQUINE [Concomitant]
     Active Substance: HYDROXYCHLOROQUINE
  6. MYCOPHENOLATE MOFETIL [Concomitant]
     Active Substance: MYCOPHENOLATE MOFETIL
  7. PREDNISOLONE [Concomitant]
     Active Substance: PREDNISOLONE
  8. Ospen [Concomitant]
  9. PHENPROCOUMON [Concomitant]
     Active Substance: PHENPROCOUMON
  10. AMLODIPINE BESYLATE [Concomitant]
     Active Substance: AMLODIPINE BESYLATE
  11. LISINOPRIL [Concomitant]
     Active Substance: LISINOPRIL
  12. ROSUVASTATIN [Concomitant]
     Active Substance: ROSUVASTATIN
  13. METHIMAZOLE [Concomitant]
     Active Substance: METHIMAZOLE
  14. PANTOPRAZOLE SODIUM [Concomitant]
     Active Substance: PANTOPRAZOLE SODIUM
  15. Novalgin [Concomitant]
  16. HYDROMORPHONE HYDROCHLORIDE [Concomitant]
     Active Substance: HYDROMORPHONE HYDROCHLORIDE
  17. PREGABALIN [Concomitant]
     Active Substance: PREGABALIN
  18. Oleovit [Concomitant]
  19. POLYETHYLENE GLYCOL 3350\POTASSIUM CHLORIDE\SODIUM BICARBONATE\SODIUM [Concomitant]
     Active Substance: POLYETHYLENE GLYCOL 3350\POTASSIUM CHLORIDE\SODIUM BICARBONATE\SODIUM CHLORIDE
  20. TIANEPTINE [Concomitant]
     Active Substance: TIANEPTINE
  21. ZOLPIDEM TARTRATE [Concomitant]
     Active Substance: ZOLPIDEM TARTRATE

REACTIONS (13)
  - Hepatic cancer [Unknown]
  - Renal haemorrhage [Unknown]
  - Escherichia infection [Unknown]
  - Abscess [Unknown]
  - Osteoporotic fracture [Unknown]
  - Spinal synovial cyst [Unknown]
  - Nephritis [Unknown]
  - Nephritis [Unknown]
  - Erysipelas [Unknown]
  - Erysipelas [Unknown]
  - Osteomyelitis [Unknown]
  - Acute myocardial infarction [Unknown]
  - Acute myocardial infarction [Unknown]
